FAERS Safety Report 14955421 (Version 1)
Quarter: 2018Q2

REPORT INFORMATION
  Report Type: Spontaneous
  Country: FR (occurrence: FR)
  Receive Date: 20180531
  Receipt Date: 20180531
  Transmission Date: 20180711
  Serious: Yes (Other)
  Sender: FDA-Public Use
  Company Number: FR-MERCK KGAA-2048746

PATIENT
  Age: 83 Year
  Sex: Female

DRUGS (1)
  1. NOVOTHYROX [Suspect]
     Active Substance: LEVOTHYROXINE SODIUM
     Indication: HYPOTHYROIDISM

REACTIONS (36)
  - Gastrointestinal disorder [None]
  - Middle insomnia [None]
  - Myalgia [Recovering/Resolving]
  - Skin wrinkling [Not Recovered/Not Resolved]
  - Dyspnoea exertional [Not Recovered/Not Resolved]
  - Pain [None]
  - General physical health deterioration [None]
  - Apathy [None]
  - Muscle disorder [None]
  - Hypokinesia [None]
  - Arthralgia [Recovering/Resolving]
  - Glomerular filtration rate decreased [None]
  - Palpitations [Recovering/Resolving]
  - Tooth erosion [Recovering/Resolving]
  - Tooth fracture [Recovering/Resolving]
  - Ear pain [None]
  - Chronic obstructive pulmonary disease [None]
  - Headache [None]
  - Face oedema [Recovering/Resolving]
  - Alopecia [Recovering/Resolving]
  - Type 2 diabetes mellitus [Recovering/Resolving]
  - Balance disorder [Recovering/Resolving]
  - Blood thyroid stimulating hormone increased [Recovered/Resolved]
  - Ichthyosis [Recovering/Resolving]
  - Migraine with aura [Recovering/Resolving]
  - Fatigue [Not Recovered/Not Resolved]
  - Psoriasis [Not Recovered/Not Resolved]
  - Malocclusion [Recovering/Resolving]
  - Feeling cold [None]
  - Muscle spasms [Recovering/Resolving]
  - Loss of personal independence in daily activities [None]
  - Nodule [Not Recovered/Not Resolved]
  - Cardiac discomfort [None]
  - Thyroxine free increased [None]
  - Nail growth abnormal [Recovering/Resolving]
  - Abdominal pain [Recovering/Resolving]

NARRATIVE: CASE EVENT DATE: 2014
